FAERS Safety Report 9782440 (Version 1)
Quarter: 2013Q4

REPORT INFORMATION
  Report Type: Spontaneous
  Country: GB (occurrence: GB)
  Receive Date: 20131226
  Receipt Date: 20131226
  Transmission Date: 20140711
  Serious: Yes (Hospitalization)
  Sender: FDA-Public Use
  Company Number: GB-JNJFOC-20131211045

PATIENT
  Age: 57 Year
  Sex: Female

DRUGS (16)
  1. XEPLION [Suspect]
     Indication: SCHIZOPHRENIA
     Route: 030
     Dates: start: 20131105
  2. RISPERIDONE [Suspect]
     Indication: PRODUCT USED FOR UNKNOWN INDICATION
     Route: 048
  3. RISPERIDAL CONSTA [Suspect]
     Indication: PRODUCT USED FOR UNKNOWN INDICATION
     Route: 030
     Dates: start: 20131024
  4. HALOPERIDOL [Suspect]
     Indication: PRODUCT USED FOR UNKNOWN INDICATION
     Route: 065
  5. CLARITHROMYCIN [Concomitant]
     Route: 065
  6. CODEINE [Concomitant]
     Route: 065
  7. DIAZEPAM [Concomitant]
     Route: 065
  8. DOXYCYCLINE [Concomitant]
     Route: 065
  9. LACTULOSE [Concomitant]
     Route: 065
  10. LORAZEPAM [Concomitant]
     Route: 065
  11. METHADONE [Concomitant]
     Route: 065
  12. ACETAMINOPHEN [Concomitant]
     Route: 065
  13. PREDNISOLONE [Concomitant]
     Route: 065
  14. SALBUTAMOL [Concomitant]
     Route: 065
  15. SENNA [Concomitant]
     Route: 065
  16. TRIMETHOPRIM [Concomitant]
     Route: 065

REACTIONS (3)
  - Catatonia [Recovering/Resolving]
  - Delirium [Recovering/Resolving]
  - Incorrect dose administered [Unknown]
